FAERS Safety Report 5396479-1 (Version None)
Quarter: 2007Q3

REPORT INFORMATION
  Report Type: 
  Country: None (occurrence: None)
  Receive Date: 20070725
  Receipt Date: 20070613
  Transmission Date: 20080115
  Serious: No
  Sender: FDA-Public Use
  Company Number: US-BAUSCH-2007BL001978

PATIENT
  Age: 80 Year
  Sex: Female

DRUGS (2)
  1. CROMOLYN SODIUM NASAL SOLUTION [Suspect]
     Route: 047
     Dates: start: 20070613, end: 20070613
  2. SYSTANE [Concomitant]
     Indication: KERATOCONJUNCTIVITIS SICCA
     Route: 047

REACTIONS (2)
  - EYE IRRITATION [None]
  - MEDICATION ERROR [None]
